FAERS Safety Report 5648420-1 (Version None)
Quarter: 2008Q1

REPORT INFORMATION
  Report Type: 
  Country: None (occurrence: None)
  Receive Date: 20080229
  Receipt Date: 20080219
  Transmission Date: 20080703
  Serious: Yes (Hospitalization)
  Sender: FDA-Public Use
  Company Number: 100#03#2008-01002

PATIENT
  Sex: Female

DRUGS (2)
  1. ERYTHROMYCIN [Suspect]
     Indication: LOCALISED INFECTION
     Dosage: 500 MG FOUR TIMES DAILY ORAL
     Route: 048
     Dates: start: 20071008, end: 20071021
  2. COLECALCIFEROL (COLECALCIFEROL) [Concomitant]

REACTIONS (7)
  - BLISTER [None]
  - OEDEMA PERIPHERAL [None]
  - PRURITUS [None]
  - RASH ERYTHEMATOUS [None]
  - SKIN DISCOLOURATION [None]
  - SKIN ULCER [None]
  - WOUND [None]
